FAERS Safety Report 10743416 (Version 2)
Quarter: 2015Q1

REPORT INFORMATION
  Report Type: Spontaneous
  Country: BR (occurrence: BR)
  Receive Date: 20150128
  Receipt Date: 20150203
  Transmission Date: 20150721
  Serious: Yes (Life-Threatening, Hospitalization, Other)
  Sender: FDA-Public Use
  Company Number: BR-AMGEN-BRASP2015006814

PATIENT
  Age: 57 Year
  Sex: Female
  Weight: 25.85 kg

DRUGS (1)
  1. ENBREL [Suspect]
     Active Substance: ETANERCEPT
     Indication: RHEUMATOID ARTHRITIS
     Dosage: 50 MG, WEEKLY
     Route: 065
     Dates: start: 2013

REACTIONS (3)
  - Femur fracture [Not Recovered/Not Resolved]
  - Fracture nonunion [Unknown]
  - Fall [Unknown]

NARRATIVE: CASE EVENT DATE: 20140904
